FAERS Safety Report 20042581 (Version 2)
Quarter: 2024Q2

REPORT INFORMATION
  Report Type: Report from Study
  Country: CA (occurrence: None)
  Receive Date: 20211108
  Receipt Date: 20240522
  Transmission Date: 20240716
  Serious: Yes (Hospitalization, Other)
  Sender: FDA-Public Use
  Company Number: CA-Orion Corporation ORION PHARMA-TREX2019-4323

PATIENT
  Age: 51 Year
  Sex: Male

DRUGS (20)
  1. METHOTREXATE [Suspect]
     Active Substance: METHOTREXATE
     Indication: Product used for unknown indication
  2. MORPHINE SULFATE [Suspect]
     Active Substance: MORPHINE SULFATE
     Indication: Product used for unknown indication
  3. COSENTYX [Suspect]
     Active Substance: SECUKINUMAB
     Indication: Ankylosing spondylitis
  4. COSENTYX [Suspect]
     Active Substance: SECUKINUMAB
  5. COSENTYX [Suspect]
     Active Substance: SECUKINUMAB
  6. COSENTYX [Suspect]
     Active Substance: SECUKINUMAB
  7. ENBREL [Concomitant]
     Active Substance: BENZYL ALCOHOL\ETANERCEPT
  8. HUMIRA [Concomitant]
     Active Substance: ADALIMUMAB
  9. HUMIRA [Concomitant]
     Active Substance: ADALIMUMAB
  10. NAPROXEN [Concomitant]
     Active Substance: NAPROXEN
  11. NAPROXEN [Concomitant]
     Active Substance: NAPROXEN
  12. NAPROXEN SODIUM\PSEUDOEPHEDRINE HYDROCHLORIDE [Concomitant]
     Active Substance: NAPROXEN SODIUM\PSEUDOEPHEDRINE HYDROCHLORIDE
  13. PREDNISONE [Concomitant]
     Active Substance: PREDNISONE
  14. REMICADE [Concomitant]
     Active Substance: INFLIXIMAB
  15. SIMPONI [Concomitant]
     Active Substance: GOLIMUMAB
  16. SIMPONI [Concomitant]
     Active Substance: GOLIMUMAB
  17. TYLENOL [Concomitant]
     Active Substance: ACETAMINOPHEN
  18. IBUPROFEN [Concomitant]
     Active Substance: IBUPROFEN
  19. INFLIXIMAB [Concomitant]
     Active Substance: INFLIXIMAB
  20. INFLECTRA [Concomitant]
     Active Substance: INFLIXIMAB-DYYB

REACTIONS (16)
  - Drug ineffective [Unknown]
  - Inappropriate schedule of product administration [Unknown]
  - Pneumonia [Unknown]
  - Ankylosing spondylitis [Unknown]
  - Arthralgia [Unknown]
  - Back pain [Unknown]
  - Discomfort [Unknown]
  - Dysstasia [Unknown]
  - Fatigue [Unknown]
  - Gait disturbance [Unknown]
  - General physical health deterioration [Unknown]
  - Joint swelling [Unknown]
  - Musculoskeletal stiffness [Unknown]
  - Pain [Unknown]
  - Tenderness [Unknown]
  - Psoriatic arthropathy [Unknown]
